FAERS Safety Report 5337602-4 (Version None)
Quarter: 2007Q2

REPORT INFORMATION
  Report Type: 
  Country: None (occurrence: None)
  Receive Date: 20070524
  Receipt Date: 20070516
  Transmission Date: 20071010
  Serious: Yes (Hospitalization)
  Sender: FDA-Public Use
  Company Number: 2007BI010703

PATIENT
  Age: 35 Year
  Sex: Male

DRUGS (1)
  1. AVONEX [Suspect]
     Indication: MULTIPLE SCLEROSIS
     Dosage: 30 UG;QW;IM
     Route: 030
     Dates: start: 20060701

REACTIONS (5)
  - CONDITION AGGRAVATED [None]
  - INJECTION SITE INFECTION [None]
  - INJECTION SITE THROMBOSIS [None]
  - MULTIPLE SCLEROSIS [None]
  - STAPHYLOCOCCAL INFECTION [None]
